FAERS Safety Report 9461632 (Version 1)
Quarter: 2013Q3

REPORT INFORMATION
  Report Type: Spontaneous
  Country: BR (occurrence: BR)
  Receive Date: 20130816
  Receipt Date: 20130816
  Transmission Date: 20140515
  Serious: Yes (Hospitalization, Other)
  Sender: FDA-Public Use
  Company Number: BR-009507513-1308BRA006765

PATIENT
  Sex: Female

DRUGS (7)
  1. ALENDRONATE SODIUM [Suspect]
     Indication: OSTEOPOROSIS
     Dosage: UNK, UNKNOWN
     Route: 048
  2. BUCLOSAMIDE [Concomitant]
     Indication: OSTEOPOROSIS
     Dosage: UNK
  3. LIPITOR [Concomitant]
     Indication: BLOOD CHOLESTEROL INCREASED
     Dosage: 10 MG, QD
     Route: 048
     Dates: start: 2003, end: 2012
  4. LIPITOR [Concomitant]
     Indication: HYPERTENSION
     Dosage: 20 MG, QD
     Route: 048
     Dates: start: 2012
  5. CARDIZEM [Concomitant]
     Dosage: UNK
     Dates: start: 2012
  6. MICARDIS [Concomitant]
     Dosage: UNK
     Dates: start: 2012
  7. SOMALGIN CARDIO [Concomitant]
     Dosage: UNK
     Dates: start: 2012

REACTIONS (3)
  - Infarction [Recovered/Resolved]
  - Renal haemorrhage [Recovered/Resolved]
  - Nephrolithiasis [Recovered/Resolved]
